FAERS Safety Report 5359441-0 (Version None)
Quarter: 2007Q2

REPORT INFORMATION
  Report Type: 
  Country: None (occurrence: None)
  Receive Date: 20070615
  Receipt Date: 20070607
  Transmission Date: 20071010
  Serious: Yes (Other)
  Sender: FDA-Public Use
  Company Number: GB-PFIZER INC-2007043056

PATIENT
  Age: 54 Year
  Sex: Female
  Weight: 75 kg

DRUGS (2)
  1. DETRUSITOL SR [Suspect]
     Indication: URGE INCONTINENCE
     Route: 048
     Dates: start: 20040423, end: 20040526
  2. METRONIDAZOLE [Concomitant]
     Route: 048
     Dates: start: 20040518, end: 20040524

REACTIONS (4)
  - DIZZINESS [None]
  - DRY MOUTH [None]
  - PALPITATIONS [None]
  - RESTLESSNESS [None]
